FAERS Safety Report 10102100 (Version 1)
Quarter: 2014Q2

REPORT INFORMATION
  Report Type: Spontaneous
  Country: US (occurrence: None)
  Receive Date: 20140423
  Receipt Date: 20140423
  Transmission Date: 20141212
  Serious: Yes (Death)
  Sender: FDA-Public Use
  Company Number: None

PATIENT
  Age: 41 Year
  Sex: Female

DRUGS (2)
  1. ALTEPLASE [Suspect]
     Route: 042
  2. HEPARIN INJECTION [Concomitant]

REACTIONS (2)
  - Haemorrhage [None]
  - Pulse absent [None]
